FAERS Safety Report 9995614 (Version 2)
Quarter: 2014Q1

REPORT INFORMATION
  Report Type: Spontaneous
  Country: DE (occurrence: DE)
  Receive Date: 20140311
  Receipt Date: 20140311
  Transmission Date: 20141002
  Serious: Yes (Death)
  Sender: FDA-Public Use
  Company Number: DE-OTSUKA-EU-2014-10056

PATIENT
  Sex: 0

DRUGS (6)
  1. SAMSCA [Suspect]
     Indication: OEDEMA
     Dosage: 0.9 MG/KG, DAILY DOSE
     Route: 065
  2. DIURETICS [Concomitant]
     Indication: DIURETIC THERAPY
     Dosage: UNK, UNKNOWN
     Route: 065
  3. FUROSEMIDE [Concomitant]
     Dosage: 6 MG/KG, UNKNOWN
     Route: 065
  4. SPIRONOLACTONE [Concomitant]
     Dosage: 2-4 MG/KG
     Route: 065
  5. THIAZIDES, PLAIN [Concomitant]
     Dosage: 2 MG/KG, UNKNOWN
     Route: 065
  6. ETACRYNIC ACID [Concomitant]
     Dosage: 1.5.- 3 MG
     Route: 065

REACTIONS (4)
  - Cardiac output decreased [Fatal]
  - Off label use [Unknown]
  - Off label use [Unknown]
  - Wrong technique in drug usage process [Unknown]
